FAERS Safety Report 18796300 (Version 1)
Quarter: 2021Q1

REPORT INFORMATION
  Report Type: Spontaneous
  Country: US (occurrence: US)
  Receive Date: 20210127
  Receipt Date: 20210127
  Transmission Date: 20210419
  Serious: Yes (Other)
  Sender: FDA-Public Use
  Company Number: US-GE HEALTHCARE LIFE SCIENCES-2021CSU000405

PATIENT
  Age: 36 Year
  Sex: Male

DRUGS (5)
  1. NORMAL SALINE [Concomitant]
     Active Substance: SODIUM CHLORIDE
     Indication: CHELATION THERAPY
     Dosage: 50 ML
  2. GADOLINIUM (UNSPECIFIED) [Suspect]
     Active Substance: GADOLINIUM
     Indication: MAGNETIC RESONANCE IMAGING
     Dosage: UNK, SINGLE
     Route: 065
  3. GADOLINIUM (UNSPECIFIED) [Suspect]
     Active Substance: GADOLINIUM
     Indication: PRODUCT USED FOR UNKNOWN INDICATION
  4. CA DTPA [Concomitant]
     Indication: CHELATION THERAPY
     Dosage: 2.5 ML
  5. CA DTPA [Concomitant]
     Dosage: 2.5 UNK

REACTIONS (2)
  - Gadolinium deposition disease [Unknown]
  - Urine analysis abnormal [Unknown]
